FAERS Safety Report 10760400 (Version 2)
Quarter: 2015Q2

REPORT INFORMATION
  Report Type: Report from Study
  Country: CA (occurrence: CA)
  Receive Date: 20150204
  Receipt Date: 20150604
  Transmission Date: 20150821
  Serious: Yes (Hospitalization)
  Sender: FDA-Public Use
  Company Number: CA-ROCHE-1176021

PATIENT
  Age: 13 Year
  Sex: Male
  Weight: 32 kg

DRUGS (4)
  1. FOLIC ACID. [Concomitant]
     Active Substance: FOLIC ACID
     Route: 065
  2. ACTEMRA [Suspect]
     Active Substance: TOCILIZUMAB
     Indication: JUVENILE IDIOPATHIC ARTHRITIS
     Route: 042
     Dates: start: 201108
  3. INDOMETHACIN. [Concomitant]
     Active Substance: INDOMETHACIN
     Route: 065
  4. RANITIDINE [Concomitant]
     Active Substance: RANITIDINE\RANITIDINE HYDROCHLORIDE
     Route: 065

REACTIONS (8)
  - Rash [Not Recovered/Not Resolved]
  - Lymphadenopathy [Recovering/Resolving]
  - Arthralgia [Recovered/Resolved]
  - Pruritus [Unknown]
  - Sleep disorder [Recovering/Resolving]
  - Pyrexia [Recovered/Resolved]
  - Juvenile idiopathic arthritis [Not Recovered/Not Resolved]
  - Lymph node pain [Recovering/Resolving]

NARRATIVE: CASE EVENT DATE: 2014
